FAERS Safety Report 6345613-5 (Version None)
Quarter: 2009Q3

REPORT INFORMATION
  Report Type: 
  Country: None (occurrence: None)
  Receive Date: 20090909
  Receipt Date: 20090831
  Transmission Date: 20100115
  Serious: Yes (Other)
  Sender: FDA-Public Use
  Company Number: US-ROCHE-650352

PATIENT
  Sex: Female
  Weight: 109.8 kg

DRUGS (2)
  1. BONIVA [Suspect]
     Indication: DRUG USE FOR UNKNOWN INDICATION
     Route: 065
     Dates: start: 20090715
  2. CARMEX [Suspect]
     Indication: DRUG USE FOR UNKNOWN INDICATION
     Route: 065
     Dates: start: 20090719

REACTIONS (1)
  - ANGIOEDEMA [None]
